FAERS Safety Report 4477862-5 (Version None)
Quarter: 2004Q4

REPORT INFORMATION
  Report Type: 
  Country: None (occurrence: None)
  Receive Date: 20041018
  Receipt Date: 20030929
  Transmission Date: 20050328
  Serious: Yes (Hospitalization, Other)
  Sender: FDA-Public Use
  Company Number: US-MERCK-0309USA03247

PATIENT
  Age: 46 Year
  Sex: Female
  Weight: 91 kg

DRUGS (7)
  1. ASPIRIN [Concomitant]
     Route: 065
  2. CELEBREX [Suspect]
     Route: 065
  3. CARDIZEM CD [Concomitant]
     Route: 065
  4. ZESTRIL [Concomitant]
     Route: 065
  5. ZESTRIL [Concomitant]
     Route: 065
  6. NITROGLYCERIN [Concomitant]
     Route: 065
  7. VIOXX [Suspect]
     Route: 048

REACTIONS (26)
  - ABDOMINAL PAIN LOWER [None]
  - ANGINA UNSTABLE [None]
  - ARTHRITIS [None]
  - BACK INJURY [None]
  - BLOOD CREATININE INCREASED [None]
  - CARDIAC ARREST [None]
  - CONTUSION [None]
  - CORONARY ARTERY OCCLUSION [None]
  - COUGH [None]
  - DIABETES MELLITUS NON-INSULIN-DEPENDENT [None]
  - FATIGUE [None]
  - GASTROOESOPHAGEAL REFLUX DISEASE [None]
  - HYPERLIPIDAEMIA [None]
  - HYPOKALAEMIA [None]
  - INSOMNIA [None]
  - JOINT INJURY [None]
  - MIGRAINE [None]
  - MUSCULOSKELETAL DISCOMFORT [None]
  - MYOCARDIAL INFARCTION [None]
  - PALPITATIONS [None]
  - PLANTAR FASCIITIS [None]
  - SCIATICA [None]
  - STRESS SYMPTOMS [None]
  - TENDONITIS [None]
  - THROMBOCYTOPENIA [None]
  - UPPER RESPIRATORY TRACT INFECTION [None]
